FAERS Safety Report 17811584 (Version 1)
Quarter: 2020Q2

REPORT INFORMATION
  Report Type: Spontaneous
  Country: JP (occurrence: JP)
  Receive Date: 20200521
  Receipt Date: 20200521
  Transmission Date: 20200714
  Serious: Yes (Other)
  Sender: FDA-Public Use
  Company Number: JP-JNJFOC-20200517529

PATIENT
  Sex: Female

DRUGS (1)
  1. RISPERDAL [Suspect]
     Active Substance: RISPERIDONE
     Indication: PRODUCT USED FOR UNKNOWN INDICATION
     Dosage: RISPERIDONE: 10MG/G
     Route: 048

REACTIONS (5)
  - Bladder discomfort [Unknown]
  - Paraesthesia [Unknown]
  - Cerebral atrophy [Unknown]
  - Pollakiuria [Unknown]
  - Amnesia [Unknown]

NARRATIVE: CASE EVENT DATE: 2020
